FAERS Safety Report 5275968-4 (Version None)
Quarter: 2007Q1

REPORT INFORMATION
  Report Type: 
  Country: None (occurrence: None)
  Receive Date: 20070326
  Receipt Date: 20070313
  Transmission Date: 20070707
  Serious: Yes (Other)
  Sender: FDA-Public Use
  Company Number: JP-ROCHE-485708

PATIENT
  Age: 5 Year
  Sex: Female
  Weight: 17 kg

DRUGS (21)
  1. CELLCEPT [Suspect]
     Route: 048
  2. CELLCEPT [Suspect]
     Route: 048
     Dates: start: 20060110, end: 20060717
  3. CELLCEPT [Suspect]
     Route: 048
     Dates: start: 20060718, end: 20070205
  4. CELLCEPT [Suspect]
     Dosage: DISCONTINUED.
     Route: 048
     Dates: start: 20070206, end: 20070301
  5. RITUXAN [Suspect]
     Route: 041
     Dates: start: 20041115
  6. RITUXAN [Suspect]
     Dosage: DISCONTINUED.
     Route: 041
     Dates: start: 20051114, end: 20060512
  7. ENDOXAN [Concomitant]
     Dosage: DOSE REPORTED AS 6 G/M^3
     Dates: start: 20040215
  8. DIAMOX [Concomitant]
     Route: 048
     Dates: start: 20060110
  9. PREDNISOLONE [Concomitant]
     Route: 048
     Dates: start: 20060110
  10. BAKTAR [Concomitant]
     Route: 048
     Dates: start: 20070110
  11. NU-LOTAN [Concomitant]
     Route: 048
     Dates: start: 20070110, end: 20070313
  12. ALFAROL [Concomitant]
     Route: 048
     Dates: start: 20070110, end: 20070313
  13. ODRIC [Concomitant]
     Route: 048
     Dates: start: 20060110
  14. LOPEMIN [Concomitant]
     Route: 048
     Dates: start: 20060302
  15. LAC B [Concomitant]
     Route: 048
     Dates: start: 20060302
  16. MUCODYNE [Concomitant]
     Route: 048
     Dates: start: 20060302
  17. FERRIC PYROPHOSPHATE [Concomitant]
     Route: 048
     Dates: start: 20060527
  18. ERYTHROCIN [Concomitant]
     Route: 048
     Dates: start: 20060527
  19. PREDONINE [Concomitant]
     Route: 048
     Dates: start: 20060527, end: 20060527
  20. ECOLICIN [Concomitant]
     Route: 031
     Dates: start: 20060718
  21. ZOVIRAX [Concomitant]
     Route: 061
     Dates: start: 20061114

REACTIONS (2)
  - HYPOGAMMAGLOBULINAEMIA [None]
  - LYMPHADENITIS [None]
